FAERS Safety Report 10542831 (Version 1)
Quarter: 2014Q4

REPORT INFORMATION
  Report Type: Spontaneous
  Country: US (occurrence: None)
  Receive Date: 20141023
  Receipt Date: 20141023
  Transmission Date: 20150529
  Serious: Yes (Hospitalization)
  Sender: FDA-Public Use
  Company Number: None

PATIENT
  Age: 64 Year
  Sex: Female
  Weight: 80.7 kg

DRUGS (18)
  1. MEPERIDINE [Concomitant]
     Active Substance: MEPERIDINE
  2. CEFAZOLIN 1,000 MG IN D5W 50 ML [Concomitant]
  3. DIPHENHYDRAMINE [Concomitant]
     Active Substance: DIPHENHYDRAMINE
  4. ASPIRIN EC [Concomitant]
     Active Substance: ASPIRIN
  5. SENNA/S [Concomitant]
  6. TRANEXAMIC ACID. [Suspect]
     Active Substance: TRANEXAMIC ACID
     Indication: HAEMORRHAGE PROPHYLAXIS
     Route: 042
     Dates: start: 20140917, end: 20140917
  7. ROPIVACAINE [Concomitant]
     Active Substance: ROPIVACAINE
  8. FENTANYL. [Concomitant]
     Active Substance: FENTANYL
  9. GABAPENTIN. [Concomitant]
     Active Substance: GABAPENTIN
  10. KETOROLAC [Concomitant]
     Active Substance: KETOROLAC\KETOROLAC TROMETHAMINE
  11. ACETAMINOPHEN. [Concomitant]
     Active Substance: ACETAMINOPHEN
  12. CELECOXIB. [Concomitant]
     Active Substance: CELECOXIB
  13. LACTATED RINGERS [Concomitant]
     Active Substance: CALCIUM CHLORIDE\POTASSIUM CHLORIDE\SODIUM CHLORIDE\SODIUM LACTATE
  14. OXYCODONE [Concomitant]
     Active Substance: OXYCODONE
  15. TRANEXAMIC ACID. [Suspect]
     Active Substance: TRANEXAMIC ACID
     Indication: HIP ARTHROPLASTY
     Route: 042
     Dates: start: 20140917, end: 20140917
  16. EPINEPHRINE. [Concomitant]
     Active Substance: EPINEPHRINE
  17. LIDOCAINE. [Concomitant]
     Active Substance: LIDOCAINE
  18. LORAZEPAM. [Concomitant]
     Active Substance: LORAZEPAM

REACTIONS (2)
  - Dystonia [None]
  - Seizure like phenomena [None]

NARRATIVE: CASE EVENT DATE: 20140917
